FAERS Safety Report 12489413 (Version 1)
Quarter: 2016Q2

REPORT INFORMATION
  Report Type: Report from Study
  Country: MY (occurrence: MY)
  Receive Date: 20160622
  Receipt Date: 20160622
  Transmission Date: 20160815
  Serious: Yes (Hospitalization)
  Sender: FDA-Public Use
  Company Number: MY-JNJFOC-20160615994

PATIENT
  Age: 79 Year
  Sex: Female

DRUGS (16)
  1. MAXOLON [Concomitant]
     Active Substance: METOCLOPRAMIDE HYDROCHLORIDE
     Indication: DIARRHOEA
     Route: 042
     Dates: start: 20140906
  2. CANAGLIFLOZIN [Suspect]
     Active Substance: CANAGLIFLOZIN
     Indication: TYPE 2 DIABETES MELLITUS
     Route: 048
     Dates: start: 20140917
  3. MAXOLON [Concomitant]
     Active Substance: METOCLOPRAMIDE HYDROCHLORIDE
     Indication: DIARRHOEA
     Route: 042
     Dates: start: 20160408
  4. ASPIRIN. [Concomitant]
     Active Substance: ASPIRIN
     Indication: ANGINA UNSTABLE
     Route: 048
     Dates: start: 20160408
  5. ASPIRIN. [Concomitant]
     Active Substance: ASPIRIN
     Indication: ANGINA UNSTABLE
     Route: 048
     Dates: start: 20160408
  6. ATORVASTATIN [Concomitant]
     Active Substance: ATORVASTATIN
     Indication: ANGINA UNSTABLE
     Route: 048
     Dates: start: 20160408
  7. PLAVIX [Concomitant]
     Active Substance: CLOPIDOGREL BISULFATE
     Indication: ANGINA UNSTABLE
     Route: 048
     Dates: start: 20160408
  8. BISOPROLOL [Concomitant]
     Active Substance: BISOPROLOL
     Indication: ANGINA UNSTABLE
     Route: 048
     Dates: start: 20160408
  9. VASTAREL [Concomitant]
     Active Substance: TRIMETAZIDINE DIHYDROCHLORIDE
     Indication: ANGINA UNSTABLE
     Route: 048
     Dates: start: 20160408
  10. CANAGLIFLOZIN [Suspect]
     Active Substance: CANAGLIFLOZIN
     Route: 048
  11. MORPHINE [Concomitant]
     Active Substance: MORPHINE
     Indication: ANGINA UNSTABLE
     Route: 042
     Dates: start: 20160408
  12. ARIXTRA [Concomitant]
     Active Substance: FONDAPARINUX SODIUM
     Indication: ANGINA UNSTABLE
     Route: 058
     Dates: start: 20160408
  13. CLOPIDOGREL [Concomitant]
     Active Substance: CLOPIDOGREL BISULFATE
     Indication: ANGINA UNSTABLE
     Route: 048
     Dates: start: 20160408
  14. MAXOLON [Concomitant]
     Active Substance: METOCLOPRAMIDE HYDROCHLORIDE
     Indication: ANGINA UNSTABLE
     Route: 042
     Dates: start: 20140906
  15. OMEPRAZOLE. [Concomitant]
     Active Substance: OMEPRAZOLE
     Indication: DIARRHOEA
     Route: 042
     Dates: start: 20140906
  16. MAXOLON [Concomitant]
     Active Substance: METOCLOPRAMIDE HYDROCHLORIDE
     Indication: ANGINA UNSTABLE
     Route: 042
     Dates: start: 20160408

REACTIONS (1)
  - Peripheral vascular disorder [Not Recovered/Not Resolved]

NARRATIVE: CASE EVENT DATE: 20160524
